FAERS Safety Report 4749648-5 (Version None)
Quarter: 2005Q3

REPORT INFORMATION
  Report Type: 
  Country: None (occurrence: None)
  Receive Date: 20050822
  Receipt Date: 20050408
  Transmission Date: 20060218
  Serious: Yes (Hospitalization, Disabling)
  Sender: FDA-Public Use
  Company Number: US-MERCK-0504USA01281

PATIENT
  Age: 58 Year
  Sex: Male
  Weight: 84 kg

DRUGS (10)
  1. VIOXX [Suspect]
     Indication: ROTATOR CUFF SYNDROME
     Route: 048
     Dates: start: 20001201, end: 20030101
  2. VIOXX [Suspect]
     Indication: SURGERY
     Route: 048
     Dates: start: 20001201, end: 20030101
  3. HYDROCODONE BITARTRATE + ACETAMINOPHEN [Concomitant]
     Route: 065
     Dates: start: 20001101, end: 20050201
  4. VICODIN [Concomitant]
     Route: 065
     Dates: start: 20010101
  5. DARVOCET-N 100 [Concomitant]
     Route: 065
     Dates: start: 20020101
  6. CELEBREX [Concomitant]
     Route: 065
     Dates: start: 20030101
  7. VICOPROFEN [Concomitant]
     Route: 065
     Dates: start: 20030101
  8. ROXICET [Concomitant]
     Route: 065
     Dates: start: 20010101
  9. AMBIEN [Concomitant]
     Route: 065
  10. TEMAZEPAM [Concomitant]
     Route: 065

REACTIONS (19)
  - ANXIETY [None]
  - BLOOD CHOLESTEROL INCREASED [None]
  - CORONARY ARTERY DISEASE [None]
  - DEPRESSION [None]
  - DIPLOPIA [None]
  - FATIGUE [None]
  - GASTRITIS [None]
  - GASTROOESOPHAGEAL REFLUX DISEASE [None]
  - HEPATIC CIRRHOSIS [None]
  - HEPATITIS C [None]
  - HIATUS HERNIA [None]
  - HYPERLIPIDAEMIA [None]
  - HYPERTENSION [None]
  - INFLUENZA [None]
  - MYOCARDIAL INFARCTION [None]
  - OESOPHAGITIS [None]
  - ROTATOR CUFF SYNDROME [None]
  - VIRAL INFECTION [None]
  - WEIGHT DECREASED [None]
